FAERS Safety Report 8887046 (Version 1)
Quarter: 2012Q4

REPORT INFORMATION
  Report Type: 
  Country: US (occurrence: US)
  Receive Date: 20121105
  Receipt Date: 20121105
  Transmission Date: 20130627
  Serious: Yes (Hospitalization, Disabling, Other)
  Sender: FDA-Public Use
  Company Number: US-009507513-1210USA011081

PATIENT

DRUGS (3)
  1. FOSAMAX [Suspect]
     Dosage: UNK
     Route: 048
     Dates: start: 20020614, end: 20080317
  2. FOSAMAX [Suspect]
     Dosage: UNK
     Route: 048
     Dates: start: 20080318, end: 20101024
  3. ALENDRONATE SODIUM [Suspect]
     Route: 048

REACTIONS (3)
  - Femur fracture [Not Recovered/Not Resolved]
  - Surgery [Unknown]
  - Pain [Not Recovered/Not Resolved]
